FAERS Safety Report 4289693-X (Version None)
Quarter: 2004Q1

REPORT INFORMATION
  Report Type: 
  Country: None (occurrence: None)
  Receive Date: 20040126
  Receipt Date: 20030528
  Transmission Date: 20041129
  Serious: Yes (Death)
  Sender: FDA-Public Use
  Company Number: 338987

PATIENT
  Sex: Male
  Weight: 1.5 kg

DRUGS (6)
  1. INVIRASE [Suspect]
     Indication: HIV INFECTION
     Dosage: 400 MG DAILY ORAL
     Route: 048
     Dates: start: 20020822, end: 20020929
  2. COMBIVIR [Concomitant]
  3. VIRACEPT [Concomitant]
  4. NORVIR [Concomitant]
  5. D4T  (STAVUDINE) [Concomitant]
  6. 3TC CONTINUING (LAMIVUDINE) [Concomitant]

REACTIONS (1)
  - STILLBIRTH [None]
